FAERS Safety Report 8524362-9 (Version None)
Quarter: 2012Q3

REPORT INFORMATION
  Report Type: 
  Country: None (occurrence: None)
  Receive Date: 20120720
  Receipt Date: 20120606
  Transmission Date: 20120928
  Serious: Yes (Hospitalization, Other)
  Sender: FDA-Public Use
  Company Number: US-ASTRAZENECA-2012SE37288

PATIENT
  Age: 40 Year
  Sex: Female
  Weight: 59 kg

DRUGS (25)
  1. FIORICET [Concomitant]
     Indication: CLUSTER HEADACHE
  2. SEROQUEL [Suspect]
     Indication: ANTIDEPRESSANT THERAPY
     Route: 048
  3. SEROQUEL [Suspect]
     Route: 048
  4. LAMICTAL [Suspect]
     Indication: CONVULSION
     Route: 065
     Dates: start: 20020101
  5. NICORETTE [Suspect]
     Indication: SMOKING CESSATION THERAPY
     Route: 048
  6. GEODON [Suspect]
     Indication: AFFECTIVE DISORDER
     Route: 065
     Dates: start: 20120501
  7. LAMICTAL [Suspect]
     Route: 065
     Dates: start: 20020101
  8. LORATADINE [Concomitant]
     Indication: HYPERSENSITIVITY
     Dosage: DAILY
  9. ZOMIG [Concomitant]
     Indication: CLUSTER HEADACHE
     Dosage: AS NEEDED
     Route: 045
  10. TIGAN [Concomitant]
     Indication: NAUSEA
  11. ATIVAN [Concomitant]
     Indication: ANXIETY
  12. LAMICTAL [Suspect]
     Indication: AFFECTIVE DISORDER
     Route: 065
     Dates: start: 20020101
  13. LAMICTAL [Suspect]
     Dosage: 1800 MG AT ONCE
     Route: 065
  14. LAMICTAL [Suspect]
     Dosage: 1800 MG AT ONCE
     Route: 065
  15. GEODON [Suspect]
     Indication: BIPOLAR DISORDER
     Route: 065
     Dates: start: 20120501
  16. GEODON [Suspect]
     Route: 065
     Dates: start: 20120501
  17. ZOMIG [Concomitant]
     Dosage: AS NEEDED
     Route: 048
  18. NEXIUM [Concomitant]
     Indication: ABDOMINAL PAIN
     Route: 048
  19. LAMICTAL [Suspect]
     Indication: MANIA
     Route: 065
     Dates: start: 20020101
  20. LAMICTAL [Suspect]
     Dosage: 1800 MG AT ONCE
     Route: 065
  21. GEODON [Suspect]
     Route: 065
     Dates: start: 20120501
  22. LAMICTAL [Suspect]
     Dosage: 1800 MG AT ONCE
     Route: 065
  23. EFFEXOR XR [Suspect]
     Indication: ANTIDEPRESSANT THERAPY
     Route: 048
  24. LESCOL [Concomitant]
     Indication: BLOOD CHOLESTEROL ABNORMAL
  25. ASPIRIN [Concomitant]
     Indication: ANTICOAGULANT THERAPY

REACTIONS (14)
  - HYPERHIDROSIS [None]
  - FEELING HOT [None]
  - ACCIDENT [None]
  - LIMB CRUSHING INJURY [None]
  - GAIT DISTURBANCE [None]
  - DEPRESSED MOOD [None]
  - DIARRHOEA [None]
  - DRUG INEFFECTIVE [None]
  - TREMOR [None]
  - WEIGHT INCREASED [None]
  - THERAPEUTIC RESPONSE UNEXPECTED [None]
  - PAIN IN EXTREMITY [None]
  - SOMNOLENCE [None]
  - ACCIDENTAL OVERDOSE [None]
